FAERS Safety Report 9437659 (Version 1)
Quarter: 2013Q3

REPORT INFORMATION
  Report Type: Spontaneous
  Country: GB (occurrence: None)
  Receive Date: 20130731
  Receipt Date: 20130731
  Transmission Date: 20140515
  Serious: Yes (Disabling, Congenital Anomaly, Other)
  Sender: FDA-Public Use
  Company Number: AUR-APL-2013-06232

PATIENT
  Age: 11 Month
  Sex: Female
  Weight: 8.7 kg

DRUGS (1)
  1. PAROXETINE [Suspect]
     Indication: DEPRESSION
     Route: 064

REACTIONS (4)
  - Developmental delay [None]
  - Speech disorder developmental [None]
  - Hypotonia [None]
  - Congenital anomaly [None]
